FAERS Safety Report 9753722 (Version 1)
Quarter: 2013Q4

REPORT INFORMATION
  Report Type: Spontaneous
  Country: US (occurrence: US)
  Receive Date: 20131213
  Receipt Date: 20131213
  Transmission Date: 20140711
  Serious: No
  Sender: FDA-Public Use
  Company Number: US-GILEAD-2010-0026595

PATIENT
  Sex: Female
  Weight: 54.43 kg

DRUGS (15)
  1. LETAIRIS [Suspect]
     Indication: PULMONARY ARTERIAL HYPERTENSION
     Route: 048
     Dates: start: 20091120, end: 20100119
  2. TRACLEER [Concomitant]
  3. COUMADIN [Concomitant]
  4. LASIX [Concomitant]
  5. NITROGLYCERIN [Concomitant]
  6. AMIODARONE [Concomitant]
  7. LANOXIN [Concomitant]
  8. HYDRALAZINE [Concomitant]
  9. TYLENOL [Concomitant]
  10. ATROVENT [Concomitant]
  11. FLOVENT [Concomitant]
  12. CYMBALTA [Concomitant]
  13. LANTUS [Concomitant]
  14. NOVOLOG [Concomitant]
  15. ZOCOR [Concomitant]

REACTIONS (2)
  - Oedema [Unknown]
  - Dyspnoea [Unknown]
